FAERS Safety Report 4713483-4 (Version None)
Quarter: 2005Q3

REPORT INFORMATION
  Report Type: 
  Country: None (occurrence: None)
  Receive Date: 20050711
  Receipt Date: 20050620
  Transmission Date: 20060218
  Serious: Yes (Hospitalization)
  Sender: FDA-Public Use
  Company Number: 11750

PATIENT
  Age: 37 Year
  Sex: Female

DRUGS (4)
  1. LEUCOVORIN [Suspect]
     Indication: COLON CANCER
     Dosage: 75 MG PO
     Route: 048
     Dates: start: 20050401, end: 20050428
  2. UFT [Suspect]
     Indication: COLON CANCER
     Dosage: 600 MG PO
     Route: 048
     Dates: start: 20050401, end: 20050428
  3. METOCLOPRAMIDE [Concomitant]
  4. FAMOTIDINE [Concomitant]

REACTIONS (5)
  - ALANINE AMINOTRANSFERASE INCREASED [None]
  - ASPARTATE AMINOTRANSFERASE INCREASED [None]
  - BLOOD BILIRUBIN INCREASED [None]
  - DIARRHOEA [None]
  - HEPATIC FUNCTION ABNORMAL [None]
